FAERS Safety Report 9539940 (Version 1)
Quarter: 2013Q3

REPORT INFORMATION
  Report Type: Spontaneous
  Country: CA (occurrence: CA)
  Receive Date: 20130920
  Receipt Date: 20130920
  Transmission Date: 20140515
  Serious: Yes (Death, Hospitalization)
  Sender: FDA-Public Use
  Company Number: CA-ROCHE-1273510

PATIENT
  Age: 63 Year
  Sex: Female

DRUGS (15)
  1. RITUXAN [Suspect]
     Indication: PRODUCT USED FOR UNKNOWN INDICATION
     Dosage: THERAPY DURATION: 9.0 DAYS
     Route: 042
  2. RITUXAN [Suspect]
     Dosage: THERAPY DURATION: ONCE
     Route: 042
  3. RITUXAN [Suspect]
     Dosage: THERAPY DURATION: ONCE
     Route: 042
  4. CEFAZOLIN [Concomitant]
     Route: 030
  5. CEFTAZIDIME [Concomitant]
     Route: 030
  6. CESAMET [Concomitant]
     Route: 065
  7. CLINDAMYCIN [Concomitant]
     Route: 065
  8. HYDROMORPHONE [Concomitant]
     Route: 065
  9. IPRATROPIUM [Concomitant]
     Route: 065
  10. LANSOPRAZOLE [Concomitant]
     Route: 065
  11. LEVOFLOXACIN [Concomitant]
     Route: 065
  12. PREDNISONE [Concomitant]
     Route: 065
  13. PRIMAQUINE [Concomitant]
     Route: 065
  14. PROCTOSONE [Concomitant]
     Route: 065
  15. SALBUTAMOL [Concomitant]
     Route: 065

REACTIONS (7)
  - Cognitive disorder [Fatal]
  - Lung disorder [Fatal]
  - Nervous system disorder [Fatal]
  - Pancytopenia [Fatal]
  - Pneumocystis jirovecii pneumonia [Fatal]
  - Progressive multifocal leukoencephalopathy [Fatal]
  - Respiratory failure [Fatal]
